FAERS Safety Report 6132664-9 (Version None)
Quarter: 2009Q1

REPORT INFORMATION
  Report Type: 
  Country: None (occurrence: None)
  Receive Date: 20090324
  Receipt Date: 20090310
  Transmission Date: 20090719
  Serious: Yes (Disabling, Other)
  Sender: FDA-Public Use
  Company Number: US-1168938

PATIENT
  Sex: Male

DRUGS (2)
  1. TRAVATAN 0.004 % OPHTHALMIC SOLUTION [Suspect]
     Indication: OCULAR HYPERTENSION
     Dosage: OPHTHALMIC
     Route: 047
     Dates: start: 20070709
  2. TRAVATAN 0.004 % OPHTHALMIC SOLUTION [Suspect]
     Indication: OPEN ANGLE GLAUCOMA
     Dosage: OPHTHALMIC
     Route: 047
     Dates: start: 20070709

REACTIONS (10)
  - BLADDER CANCER [None]
  - CATARACT NUCLEAR [None]
  - CHRONIC OBSTRUCTIVE PULMONARY DISEASE [None]
  - DEAFNESS NEUROSENSORY [None]
  - DERMATITIS [None]
  - GASTROOESOPHAGEAL REFLUX DISEASE [None]
  - KERATOCONJUNCTIVITIS SICCA [None]
  - PINGUECULA [None]
  - RHEUMATOID ARTHRITIS [None]
  - SINUSITIS [None]
